FAERS Safety Report 5042901-X (Version None)
Quarter: 2006Q3

REPORT INFORMATION
  Report Type: 
  Country: None (occurrence: None)
  Receive Date: 20060705
  Receipt Date: 20060623
  Transmission Date: 20061208
  Serious: Yes (Disabling, Other)
  Sender: FDA-Public Use
  Company Number: GB-AVENTIS-200616773GDDC

PATIENT
  Age: 43 Year
  Sex: Female

DRUGS (4)
  1. METRONIDAZOLE [Suspect]
  2. LANSOPRAZOLE [Suspect]
     Indication: HELICOBACTER INFECTION
     Route: 048
     Dates: start: 20060520, end: 20060522
  3. CLARITHROMYCIN [Suspect]
  4. RANITIDINE [Concomitant]
     Indication: DYSPEPSIA
     Route: 048

REACTIONS (2)
  - MALAISE [None]
  - RASH [None]
